FAERS Safety Report 21629839 (Version 1)
Quarter: 2022Q4

REPORT INFORMATION
  Report Type: Report from Study
  Country: US (occurrence: US)
  Receive Date: 20221122
  Receipt Date: 20221122
  Transmission Date: 20230113
  Serious: No
  Sender: FDA-Public Use
  Company Number: US-ABBVIE-22K-163-4411770-00

PATIENT
  Age: 71 Year
  Sex: Female
  Weight: 61.234 kg

DRUGS (2)
  1. HUMIRA [Suspect]
     Active Substance: ADALIMUMAB
     Indication: Rheumatoid arthritis
     Dosage: CITRATE FREE, FORM STRENGTH: 40 MG
     Route: 058
     Dates: end: 202207
  2. HUMIRA [Suspect]
     Active Substance: ADALIMUMAB
     Dosage: FORM STRENGTH: 40 MG
     Route: 058
     Dates: start: 202207, end: 202209

REACTIONS (6)
  - Incorrect dose administered [Unknown]
  - Drug ineffective [Not Recovered/Not Resolved]
  - Wrong technique in product usage process [Unknown]
  - Musculoskeletal stiffness [Unknown]
  - Rheumatoid arthritis [Recovering/Resolving]
  - Device issue [Recovering/Resolving]

NARRATIVE: CASE EVENT DATE: 20220701
